FAERS Safety Report 26028016 (Version 1)
Quarter: 2025Q4

REPORT INFORMATION
  Report Type: Spontaneous
  Country: US (occurrence: US)
  Receive Date: 20251111
  Receipt Date: 20251111
  Transmission Date: 20260118
  Serious: Yes (Other)
  Sender: BOEHRINGER INGELHEIM
  Company Number: US-Komodo Health-a23aa00000C0H1xAAF

PATIENT
  Sex: Female

DRUGS (2)
  1. OFEV [Suspect]
     Active Substance: NINTEDANIB
     Indication: Idiopathic pulmonary fibrosis
     Dosage: FORM STRENGTH: 150 MILLIGRAM
  2. OFEV [Suspect]
     Active Substance: NINTEDANIB

REACTIONS (1)
  - Cerebrovascular accident [Unknown]
